FAERS Safety Report 13673837 (Version 4)
Quarter: 2017Q4

REPORT INFORMATION
  Report Type: Report from Study
  Country: CA (occurrence: CA)
  Receive Date: 20170621
  Receipt Date: 20171114
  Transmission Date: 20180320
  Serious: Yes (Other)
  Sender: FDA-Public Use
  Company Number: CA-AMGEN-CANSL2017087666

PATIENT
  Age: 47 Year
  Sex: Female
  Weight: 89.6 kg

DRUGS (4)
  1. KYPROLIS [Suspect]
     Active Substance: CARFILZOMIB
     Indication: PLASMA CELL MYELOMA
     Dosage: 56 MG, UNK (IN 80 ML D5 ON DAY 1, 2, 8, 9, 15 AND 16 EVERY 5 WEEKS)
     Route: 042
     Dates: start: 201612
  2. KYPROLIS [Suspect]
     Active Substance: CARFILZOMIB
     Dosage: 56 MG, OD X2 X 3 WEEKS
     Route: 042
  3. KYPROLIS [Suspect]
     Active Substance: CARFILZOMIB
     Dosage: 48 MG, UNK ODX2X3 WEEK
     Route: 042
  4. KYPROLIS [Suspect]
     Active Substance: CARFILZOMIB
     Dosage: 56 MG, UNK (IN 80 ML D5 ON DAY 1, 2, 8, 9, 15 AND 16 EVERY 5 WEEKS)
     Route: 042

REACTIONS (13)
  - Decreased appetite [Not Recovered/Not Resolved]
  - Pyrexia [Recovered/Resolved]
  - Dysphagia [Not Recovered/Not Resolved]
  - Chills [Recovered/Resolved]
  - Dyspnoea [Recovering/Resolving]
  - Anxiety [Unknown]
  - Angioedema [Recovering/Resolving]
  - Somnolence [Not Recovered/Not Resolved]
  - Malaise [Not Recovered/Not Resolved]
  - Depression [Recovering/Resolving]
  - Pain [Recovering/Resolving]
  - Fatigue [Not Recovered/Not Resolved]
  - Vomiting [Recovered/Resolved]

NARRATIVE: CASE EVENT DATE: 20170604
